FAERS Safety Report 6072479-3 (Version None)
Quarter: 2009Q1

REPORT INFORMATION
  Report Type: 
  Country: None (occurrence: None)
  Receive Date: 20090210
  Receipt Date: 20090130
  Transmission Date: 20090719
  Serious: Yes (Hospitalization)
  Sender: FDA-Public Use
  Company Number: JP-ROCHE-611838

PATIENT
  Age: 9 Year
  Sex: Male
  Weight: 25 kg

DRUGS (6)
  1. TAMIFLU [Suspect]
     Indication: INFLUENZA
     Dosage: DRUG NAME REPORTED AS: TAMIFLU DRY SYRUP 3 %.
     Route: 048
     Dates: start: 20090126, end: 20090126
  2. TOMIRON [Concomitant]
     Route: 048
     Dates: start: 20090126
  3. MUCODYNE [Concomitant]
     Route: 048
     Dates: start: 20090126
  4. PERIACTIN [Concomitant]
     Route: 048
     Dates: start: 20090126
  5. BIOFERMIN [Concomitant]
     Route: 048
     Dates: start: 20090126
  6. CALONAL [Concomitant]
     Route: 048
     Dates: start: 20090126

REACTIONS (1)
  - ABNORMAL BEHAVIOUR [None]
